FAERS Safety Report 6197239-4 (Version None)
Quarter: 2009Q2

REPORT INFORMATION
  Report Type: 
  Country: None (occurrence: None)
  Receive Date: 20090521
  Receipt Date: 20090507
  Transmission Date: 20091009
  Serious: Yes (Disabling, Other)
  Sender: FDA-Public Use
  Company Number: FR-RANBAXY-2009RR-24049

PATIENT
  Sex: Female

DRUGS (13)
  1. LOPERAMIDE HCL [Suspect]
     Dosage: UNK
     Route: 048
     Dates: start: 19940101
  2. NEURONTIN [Suspect]
     Dosage: 300 MG, TID
     Route: 048
     Dates: start: 20080101, end: 20090327
  3. GABAPENTIN TEVA [Suspect]
     Dosage: 1500 MG, UNK
     Route: 048
     Dates: start: 20090328, end: 20090401
  4. OXYBUTYNIN CHLORIDE [Suspect]
     Dosage: UNK
     Dates: start: 20080101
  5. COMPETACT [Concomitant]
     Indication: DIABETES MELLITUS
     Dosage: 15 MG, BID
     Dates: start: 20080101
  6. PROPRANOLOL HYDROCHLORIDE [Concomitant]
     Indication: TACHYCARDIA
     Dosage: 160 MG, QD
     Route: 048
     Dates: start: 20030101
  7. KETOPROFEN [Concomitant]
     Indication: BACK PAIN
     Dosage: UNK
     Route: 048
     Dates: start: 20080101
  8. TRAMADOL HYDROCHLORIDE [Concomitant]
     Dosage: 200 MG, BID
     Route: 048
     Dates: start: 20070101
  9. ESOMEPRAZOLE MAGNESIUM [Concomitant]
     Dosage: 40 MG, QD
     Route: 048
  10. GLIMEPIRIDE [Concomitant]
     Indication: DIABETES MELLITUS
     Dosage: 2 MG, QD
     Route: 048
     Dates: start: 20070101
  11. ENDOTELON [Concomitant]
     Indication: OEDEMA PERIPHERAL
     Dosage: 2 DF, BID
     Route: 048
  12. LEKOVIT CA [Concomitant]
     Dosage: UNK
     Route: 048
     Dates: start: 20080101
  13. OROCAL D3 [Concomitant]

REACTIONS (5)
  - NOCTURIA [None]
  - OEDEMA PERIPHERAL [None]
  - PAIN IN EXTREMITY [None]
  - URINARY INCONTINENCE [None]
  - URINARY TRACT INFECTION [None]
